FAERS Safety Report 11325150 (Version 1)
Quarter: 2015Q3

REPORT INFORMATION
  Report Type: Report from Study
  Country: DE (occurrence: DE)
  Receive Date: 20150730
  Receipt Date: 20150730
  Transmission Date: 20151125
  Serious: Yes (Hospitalization)
  Sender: FDA-Public Use
  Company Number: DE-MYLANLABS-2015M1024960

PATIENT

DRUGS (6)
  1. METHOTREXATE SODIUM. [Suspect]
     Active Substance: METHOTREXATE SODIUM
     Dosage: 15 MG, QW
     Route: 058
     Dates: start: 20100618, end: 20121012
  2. L-THYROXIN [Concomitant]
     Active Substance: LEVOTHYROXINE SODIUM
     Indication: HYPOTHYROIDISM
  3. METHOTREXATE SODIUM. [Suspect]
     Active Substance: METHOTREXATE SODIUM
     Dosage: 15 MG, QW
     Route: 048
     Dates: start: 20121120
  4. FOLIC ACID. [Concomitant]
     Active Substance: FOLIC ACID
     Indication: THYROIDECTOMY
  5. FOLIC ACID. [Concomitant]
     Active Substance: FOLIC ACID
     Indication: HYPOTHYROIDISM
     Dosage: UNK
     Dates: start: 20100618
  6. L-THYROXIN [Concomitant]
     Active Substance: LEVOTHYROXINE SODIUM
     Indication: THYROIDECTOMY
     Dosage: UNK
     Dates: start: 201008

REACTIONS (2)
  - Tetany [Recovered/Resolved]
  - Hypocalcaemia [Not Recovered/Not Resolved]

NARRATIVE: CASE EVENT DATE: 20141203
